FAERS Safety Report 13507383 (Version 2)
Quarter: 2017Q2

REPORT INFORMATION
  Report Type: Report from Study
  Country: JP (occurrence: JP)
  Receive Date: 20170503
  Receipt Date: 20170505
  Transmission Date: 20170830
  Serious: Yes (Other)
  Sender: FDA-Public Use
  Company Number: JP-BEH-2017079924

PATIENT
  Sex: Female
  Weight: 55.1 kg

DRUGS (1)
  1. HIZENTRA [Suspect]
     Active Substance: HUMAN IMMUNOGLOBULIN G
     Indication: IMMUNODEFICIENCY COMMON VARIABLE
     Dosage: 40 ML, QW
     Route: 058
     Dates: start: 20150305, end: 20150924

REACTIONS (3)
  - Bacterial parotitis [Unknown]
  - Bronchiectasis [Unknown]
  - Respiratory tract infection [Unknown]
